FAERS Safety Report 15547025 (Version 1)
Quarter: 2018Q4

REPORT INFORMATION
  Report Type: Spontaneous
  Country: BG (occurrence: BG)
  Receive Date: 20181024
  Receipt Date: 20181024
  Transmission Date: 20190205
  Serious: Yes (Hospitalization)
  Sender: FDA-Public Use
  Company Number: BG-SA-2018SA291104

PATIENT
  Age: 50 Year
  Sex: Female

DRUGS (4)
  1. CAPRELSA [Suspect]
     Active Substance: VANDETANIB
     Dosage: 200 MG, QD
     Dates: start: 201711
  2. CAPRELSA [Suspect]
     Active Substance: VANDETANIB
     Dosage: 300 MG, QD
     Dates: start: 201704, end: 201711
  3. CAPRELSA [Suspect]
     Active Substance: VANDETANIB
     Dosage: 300 MG, QD
     Dates: start: 201612, end: 201702
  4. CAPRELSA [Suspect]
     Active Substance: VANDETANIB
     Dosage: 200 MG, QD
     Dates: start: 201702, end: 201703

REACTIONS (12)
  - Eye irritation [Unknown]
  - Dry skin [Unknown]
  - Onychoclasis [Unknown]
  - Dermatitis [Unknown]
  - Vision blurred [Unknown]
  - Epistaxis [Unknown]
  - Pyrexia [Unknown]
  - Rash [Unknown]
  - Wound [Unknown]
  - Wound haemorrhage [Unknown]
  - Burning sensation [Unknown]
  - Paronychia [Unknown]

NARRATIVE: CASE EVENT DATE: 201701
